FAERS Safety Report 7319022-6 (Version None)
Quarter: 2011Q1

REPORT INFORMATION
  Report Type: 
  Country: None (occurrence: None)
  Receive Date: 20110228
  Receipt Date: 20110227
  Transmission Date: 20110831
  Serious: Yes (Other)
  Sender: FDA-Public Use
  Company Number: US-PFIZER INC-2011042105

PATIENT
  Age: 31 Year
  Sex: Male
  Weight: 72.5 kg

DRUGS (1)
  1. GEODON [Suspect]
     Indication: MYOCARDIAL INFARCTION
     Dosage: UNK
     Dates: start: 20101001, end: 20101001

REACTIONS (6)
  - LOSS OF CONSCIOUSNESS [None]
  - DIZZINESS [None]
  - TREMOR [None]
  - PALPITATIONS [None]
  - CONFUSIONAL STATE [None]
  - PARANOIA [None]
